FAERS Safety Report 6766818-5 (Version None)
Quarter: 2010Q2

REPORT INFORMATION
  Report Type: 
  Country: None (occurrence: None)
  Receive Date: 20100609
  Receipt Date: 20100526
  Transmission Date: 20101027
  Serious: Yes (Disabling)
  Sender: FDA-Public Use
  Company Number: 2010-00564

PATIENT
  Sex: Male
  Weight: 94 kg

DRUGS (4)
  1. SIMVASTATIN [Suspect]
     Indication: HYPERCHOLESTEROLAEMIA
     Dosage: 40 MG, ORAL
     Route: 048
     Dates: start: 20090227, end: 20091201
  2. INEGY (EZETIMIBE, SIMVASTATIN) (UNKNOWN) [Suspect]
     Indication: HYPERCHOLESTEROLAEMIA
     Dosage: ORAL
     Route: 048
     Dates: start: 20090424, end: 20091201
  3. SALBUTAMOL (UNKNOWN) [Concomitant]
  4. SERETIDE (FLUTICASONE PROPIONATE MICRONISED, SALMETEROL XINAFOATE MICR [Concomitant]

REACTIONS (1)
  - ASTHMA [None]
